FAERS Safety Report 5266329-2 (Version None)
Quarter: 2007Q1

REPORT INFORMATION
  Report Type: 
  Country: None (occurrence: None)
  Receive Date: 20070315
  Receipt Date: 20070307
  Transmission Date: 20070707
  Serious: Yes (Disabling, Other)
  Sender: FDA-Public Use
  Company Number: US-AVENTIS-200711651US

PATIENT
  Sex: Female

DRUGS (10)
  1. LANTUS [Suspect]
     Dates: start: 20061201
  2. LANTUS [Suspect]
  3. LANTUS [Suspect]
  4. PROGRAF [Concomitant]
     Dosage: DOSE: UNK
  5. VALTREX [Concomitant]
     Dosage: DOSE: UNK
  6. NORVASC [Concomitant]
     Dosage: DOSE: UNK
  7. PREDNISONE [Concomitant]
     Dosage: DOSE: 5MG QOD
  8. PREVACID [Concomitant]
     Dosage: DOSE: UNK
  9. LEVOTHYROXINE SODIUM [Concomitant]
     Dosage: DOSE: UNK
  10. BACTRIM [Concomitant]
     Dosage: DOSE: UNK

REACTIONS (4)
  - FLUID RETENTION [None]
  - GAIT DISTURBANCE [None]
  - HYPOAESTHESIA [None]
  - PAIN [None]
